FAERS Safety Report 7317650-5 (Version None)
Quarter: 2011Q1

REPORT INFORMATION
  Report Type: 
  Country: None (occurrence: None)
  Receive Date: 20110226
  Receipt Date: 20101124
  Transmission Date: 20110831
  Serious: Yes (Hospitalization)
  Sender: FDA-Public Use
  Company Number: US-ALLERGAN-1015277US

PATIENT
  Age: 16 Year
  Sex: Male

DRUGS (1)
  1. BOTOXA? [Suspect]
     Indication: SCOLIOSIS
     Dosage: UNK
     Route: 030
     Dates: start: 20101118, end: 20101118

REACTIONS (2)
  - DYSPHAGIA [None]
  - DYSPNOEA [None]
